FAERS Safety Report 13277212 (Version 1)
Quarter: 2017Q1

REPORT INFORMATION
  Report Type: Spontaneous
  Country: US (occurrence: US)
  Receive Date: 20170228
  Receipt Date: 20170228
  Transmission Date: 20170428
  Serious: Yes (Death)
  Sender: FDA-Public Use
  Company Number: None

PATIENT
  Age: 80 Year
  Sex: Male
  Weight: 68.1 kg

DRUGS (6)
  1. PLAVIX - GENERIC CLOPIDOGREL [Suspect]
     Active Substance: CLOPIDOGREL BISULFATE
     Indication: CEREBROVASCULAR ACCIDENT PROPHYLAXIS
     Dosage: ?          QUANTITY:AKING OR;?
     Route: 048
     Dates: end: 20160224
  2. MOBIC [Concomitant]
     Active Substance: MELOXICAM
  3. TOPROL XL [Concomitant]
     Active Substance: METOPROLOL SUCCINATE
  4. PREDNISONE. [Concomitant]
     Active Substance: PREDNISONE
  5. PLETAL [Concomitant]
     Active Substance: CILOSTAZOL
  6. BENADRYL [Concomitant]
     Active Substance: DIPHENHYDRAMINE HYDROCHLORIDE

REACTIONS (2)
  - Haemorrhage intracranial [None]
  - Coma [None]

NARRATIVE: CASE EVENT DATE: 20160224
